FAERS Safety Report 5754557-9 (Version None)
Quarter: 2008Q2

REPORT INFORMATION
  Report Type: 
  Country: None (occurrence: None)
  Receive Date: 20080530
  Receipt Date: 20080520
  Transmission Date: 20081010
  Serious: Yes (Other)
  Sender: FDA-Public Use
  Company Number: US-PFIZER INC-2008043246

PATIENT
  Sex: Female
  Weight: 102.27 kg

DRUGS (5)
  1. LIPITOR [Suspect]
     Indication: BLOOD CHOLESTEROL INCREASED
  2. ASPIRIN [Concomitant]
  3. CALCIUM [Concomitant]
  4. HYDROCHLOROTHIAZIDE [Concomitant]
  5. ACTOS [Concomitant]

REACTIONS (5)
  - ABASIA [None]
  - DIZZINESS [None]
  - IMPAIRED DRIVING ABILITY [None]
  - INFLUENZA [None]
  - MUSCLE SPASMS [None]
